FAERS Safety Report 19966401 (Version 3)
Quarter: 2022Q1

REPORT INFORMATION
  Report Type: Spontaneous
  Country: US (occurrence: US)
  Receive Date: 20211019
  Receipt Date: 20220215
  Transmission Date: 20220423
  Serious: No
  Sender: FDA-Public Use
  Company Number: US-BIOGEN-2021BI01047685

PATIENT
  Age: 59 Year
  Sex: Female

DRUGS (3)
  1. VUMERITY [Suspect]
     Active Substance: DIROXIMEL FUMARATE
     Indication: Multiple sclerosis
     Route: 065
     Dates: start: 20210916
  2. VUMERITY [Suspect]
     Active Substance: DIROXIMEL FUMARATE
     Route: 048
     Dates: start: 20210924, end: 20210930
  3. VUMERITY [Suspect]
     Active Substance: DIROXIMEL FUMARATE
     Route: 048
     Dates: start: 20211001

REACTIONS (10)
  - Prescribed underdose [Unknown]
  - Illness [Not Recovered/Not Resolved]
  - Sluggishness [Not Recovered/Not Resolved]
  - Anxiety [Unknown]
  - Mental impairment [Unknown]
  - Fatigue [Unknown]
  - Decreased appetite [Unknown]
  - Asthenia [Unknown]
  - Nausea [Not Recovered/Not Resolved]
  - Diarrhoea [Unknown]

NARRATIVE: CASE EVENT DATE: 20210901
